FAERS Safety Report 6232194-X (Version None)
Quarter: 2009Q2

REPORT INFORMATION
  Report Type: 
  Country: None (occurrence: None)
  Receive Date: 20090617
  Receipt Date: 20090611
  Transmission Date: 20091009
  Serious: Yes (Life-Threatening, Disabling, Other)
  Sender: FDA-Public Use
  Company Number: IL-BRISTOL-MYERS SQUIBB COMPANY-14354138

PATIENT
  Age: 73 Year
  Sex: Female

DRUGS (3)
  1. CETUXIMAB [Suspect]
     Indication: BREAST CANCER METASTATIC
     Dosage: 1ST INFUSION:24JUN2008-ONGOING MOST RECENT INFUSION OF CETUXIMAB WAS ADMINISTERED ON 15-SEP-2008.
     Route: 041
     Dates: start: 20080624
  2. CISPLATIN [Suspect]
     Indication: BREAST CANCER METASTATIC
     Dosage: 1ST INFUSION:24JUN2008-ONGOING MOST RECENT INFUSION: 01-SEP-2008.
     Route: 041
     Dates: start: 20080624
  3. COUMADIN [Concomitant]
     Indication: DEEP VEIN THROMBOSIS
     Dates: start: 20080825

REACTIONS (1)
  - PULMONARY EMBOLISM [None]
